FAERS Safety Report 9168732 (Version 1)
Quarter: 2013Q1

REPORT INFORMATION
  Report Type: Spontaneous
  Country: US (occurrence: US)
  Receive Date: 20130318
  Receipt Date: 20130318
  Transmission Date: 20140127
  Serious: Yes (Other)
  Sender: FDA-Public Use
  Company Number: US-PFIZER INC-2013088157

PATIENT
  Sex: Female

DRUGS (1)
  1. LYRICA [Suspect]
     Dosage: UNK
     Dates: start: 20130313

REACTIONS (5)
  - Balance disorder [Unknown]
  - Abasia [Unknown]
  - Dizziness [Unknown]
  - Feeling abnormal [Unknown]
  - Muscular weakness [Unknown]
